FAERS Safety Report 7659802-0 (Version None)
Quarter: 2011Q3

REPORT INFORMATION
  Report Type: 
  Country: None (occurrence: None)
  Receive Date: 20110805
  Receipt Date: 20110801
  Transmission Date: 20111222
  Serious: Yes (Other)
  Sender: FDA-Public Use
  Company Number: GXKR2011DE02371

PATIENT
  Age: 38 Year
  Sex: Female

DRUGS (1)
  1. SIMVASTATIN [Suspect]
     Route: 048

REACTIONS (3)
  - ANTIPHOSPHOLIPID SYNDROME [None]
  - VENOUS THROMBOSIS LIMB [None]
  - BETA-2 GLYCOPROTEIN ANTIBODY POSITIVE [None]
